FAERS Safety Report 10196687 (Version 1)
Quarter: 2014Q2

REPORT INFORMATION
  Report Type: Spontaneous
  Country: US (occurrence: US)
  Receive Date: 20140527
  Receipt Date: 20140527
  Transmission Date: 20141212
  Serious: No
  Sender: FDA-Public Use
  Company Number: US-009507513-1405USA011116

PATIENT
  Sex: Male

DRUGS (2)
  1. INTRONA [Suspect]
     Dosage: UNK
  2. INTRONA [Suspect]
     Dosage: UNK

REACTIONS (1)
  - Drug ineffective [Unknown]
